FAERS Safety Report 6411185-X (Version None)
Quarter: 2009Q4

REPORT INFORMATION
  Report Type: 
  Country: None (occurrence: None)
  Receive Date: 20091019
  Receipt Date: 20091013
  Transmission Date: 20100525
  Serious: Yes (Other)
  Sender: FDA-Public Use
  Company Number: 2009SP030435

PATIENT
  Age: 50 Year
  Sex: Male

DRUGS (4)
  1. REBETOL [Suspect]
     Indication: HEPATITIS CHRONIC ACTIVE
     Dosage: 200 MG; QD; PO, 400 MG; QD; PO
     Route: 048
     Dates: start: 20070101, end: 20071101
  2. REBETOL [Suspect]
     Indication: HEPATITIS CHRONIC ACTIVE
     Dosage: 200 MG; QD; PO, 400 MG; QD; PO
     Route: 048
     Dates: start: 20071101
  3. INTRON A [Suspect]
     Indication: HEPATITIS CHRONIC ACTIVE
     Dosage: 1.5 MIU; TIW; IM, 3 MIU; TIW; IM
     Route: 030
     Dates: start: 20070101, end: 20071101
  4. INTRON A [Suspect]
     Indication: HEPATITIS CHRONIC ACTIVE
     Dosage: 1.5 MIU; TIW; IM, 3 MIU; TIW; IM
     Route: 030
     Dates: start: 20071101

REACTIONS (2)
  - LYMPH NODE TUBERCULOSIS [None]
  - PULMONARY TUBERCULOSIS [None]
